FAERS Safety Report 5306203-6 (Version None)
Quarter: 2007Q1

REPORT INFORMATION
  Report Type: 
  Country: None (occurrence: None)
  Receive Date: 20070201
  Receipt Date: 20061114
  Transmission Date: 20070707
  Serious: No
  Sender: FDA-Public Use
  Company Number: 2006PV025188

PATIENT
  Age: 50 Year
  Sex: Female
  Weight: 157.8518 kg

DRUGS (8)
  1. BYETTA [Suspect]
     Indication: DIABETES MELLITUS NON-INSULIN-DEPENDENT
     Dosage: 5 MCG;BID;SC
     Route: 058
     Dates: start: 20061020, end: 20061110
  2. GLIPIZIDE [Concomitant]
  3. ACTOS [Concomitant]
  4. ZOCOR [Concomitant]
  5. VYTORIN [Concomitant]
  6. MICARDIS HCT [Concomitant]
  7. CARDIZEM [Concomitant]
  8. FUROSEMIDE [Concomitant]

REACTIONS (3)
  - VISION BLURRED [None]
  - VISUAL BRIGHTNESS [None]
  - WEIGHT DECREASED [None]
